FAERS Safety Report 11024692 (Version 1)
Quarter: 2015Q2

REPORT INFORMATION
  Report Type: Spontaneous
  Country: JP (occurrence: JP)
  Receive Date: 20150414
  Receipt Date: 20150414
  Transmission Date: 20150821
  Serious: Yes (Death, Other)
  Sender: FDA-Public Use
  Company Number: JP-TEVA-554550ISR

PATIENT
  Age: 54 Year
  Sex: Male

DRUGS (2)
  1. CYTARABINE. [Suspect]
     Active Substance: CYTARABINE
     Route: 065
  2. ACLARUBICIN [Suspect]
     Active Substance: ACLARUBICIN
     Route: 065

REACTIONS (2)
  - Febrile neutropenia [Unknown]
  - Death [Fatal]
